FAERS Safety Report 8044777-5 (Version None)
Quarter: 2012Q1

REPORT INFORMATION
  Report Type: 
  Country: None (occurrence: None)
  Receive Date: 20120113
  Receipt Date: 20120110
  Transmission Date: 20120608
  Serious: Yes (Death, Life-Threatening, Hospitalization, Other)
  Sender: FDA-Public Use
  Company Number: US-JNJFOC-20120103384

PATIENT
  Age: 34 Year
  Sex: Female

DRUGS (4)
  1. NUCYNTA [Suspect]
     Indication: PRODUCT USED FOR UNKNOWN INDICATION
     Dosage: 60 TABLETS IN 2 WEEKS
     Route: 065
  2. BENZODIAZEPINE NOS [Suspect]
     Indication: PRODUCT USED FOR UNKNOWN INDICATION
     Route: 065
  3. METHADONE HCL [Suspect]
     Indication: PRODUCT USED FOR UNKNOWN INDICATION
     Route: 065
  4. NEO-SYNEPHRINE ANTIHISTAMINE COLD [Concomitant]

REACTIONS (8)
  - DISSEMINATED INTRAVASCULAR COAGULATION [None]
  - TACHYCARDIA [None]
  - DYSPNOEA [None]
  - TOXICITY TO VARIOUS AGENTS [None]
  - INFECTION [None]
  - TRANSAMINASES INCREASED [None]
  - HYPOTENSION [None]
  - ANURIA [None]
